FAERS Safety Report 7485154-5 (Version None)
Quarter: 2011Q2

REPORT INFORMATION
  Report Type: 
  Country: None (occurrence: None)
  Receive Date: 20110517
  Receipt Date: 20101130
  Transmission Date: 20111010
  Serious: Yes (Hospitalization, Other)
  Sender: FDA-Public Use
  Company Number: US-BAYER-201025525NA

PATIENT
  Age: 26 Year
  Sex: Female
  Weight: 99.773 kg

DRUGS (7)
  1. YASMIN [Suspect]
     Indication: PREMENSTRUAL SYNDROME
  2. NORCO [Concomitant]
     Indication: PAIN
     Dosage: UNK
     Dates: start: 20100101, end: 20100501
  3. MOTRIN [Concomitant]
     Indication: PAIN
     Dosage: 800 MG, UNK
  4. YASMIN [Suspect]
     Indication: MENSTRUAL CYCLE MANAGEMENT
     Dosage: UNK
     Route: 048
     Dates: start: 20060228, end: 20060401
  5. HYDROCODONE BITARTRATE [Concomitant]
     Indication: PAIN
     Dosage: UNK
     Dates: start: 20060101, end: 20100101
  6. PERCOCET [Concomitant]
     Indication: PAIN
  7. ADVIL LIQUI-GELS [Concomitant]
     Dosage: UNK UNK, PRN
     Dates: start: 20000101

REACTIONS (2)
  - BACK PAIN [None]
  - DEEP VEIN THROMBOSIS [None]
